FAERS Safety Report 16358606 (Version 2)
Quarter: 2019Q3

REPORT INFORMATION
  Report Type: Spontaneous
  Country: US (occurrence: US)
  Receive Date: 20190527
  Receipt Date: 20190820
  Transmission Date: 20191004
  Serious: Yes (Death, Hospitalization, Other)
  Sender: FDA-Public Use
  Company Number: US-009507513-1905USA011109

PATIENT
  Age: 71 Year
  Sex: Female

DRUGS (1)
  1. KEYTRUDA [Suspect]
     Active Substance: PEMBROLIZUMAB
     Indication: SMALL CELL LUNG CANCER
     Dosage: UNK
     Route: 042
     Dates: start: 20190402, end: 20190423

REACTIONS (10)
  - Lethargy [Unknown]
  - Colitis [Unknown]
  - Death [Fatal]
  - Renal failure [Unknown]
  - Fatigue [Unknown]
  - Hypotension [Unknown]
  - Blister [Unknown]
  - White blood cell count increased [Unknown]
  - Dyspnoea [Unknown]
  - Chills [Unknown]

NARRATIVE: CASE EVENT DATE: 2019
